FAERS Safety Report 24269409 (Version 1)
Quarter: 2024Q3

REPORT INFORMATION
  Report Type: Spontaneous
  Country: CN (occurrence: CN)
  Receive Date: 20240830
  Receipt Date: 20240830
  Transmission Date: 20241017
  Serious: Yes (Other)
  Sender: ROCHE
  Company Number: CN-ROCHE-10000063547

PATIENT
  Sex: Female
  Weight: 50 kg

DRUGS (6)
  1. CELLCEPT [Suspect]
     Active Substance: MYCOPHENOLATE MOFETIL
     Indication: Neuromyelitis optica spectrum disorder
     Dosage: (750 MG/DAY TWICE DAILY) 1500 MG/D AS A MAINTENANCE REGIMEN.
     Route: 048
  2. MABTHERA [Suspect]
     Active Substance: RITUXIMAB
     Indication: Neuromyelitis optica spectrum disorder
     Dosage: 15-30 MG/DAY
     Route: 065
     Dates: start: 201904
  3. ENSPRYNG [Concomitant]
     Active Substance: SATRALIZUMAB-MWGE
     Indication: Neuromyelitis optica spectrum disorder
     Route: 058
     Dates: start: 202111
  4. PREDNISONE [Concomitant]
     Active Substance: PREDNISONE
     Indication: Neuromyelitis optica spectrum disorder
     Dosage: REDUCED FROM 15 MG/DAY TO 5 MG/DAY
     Route: 048
  5. METHYLPREDNISOLONE [Concomitant]
     Active Substance: METHYLPREDNISOLONE
     Indication: Neuromyelitis optica spectrum disorder
  6. immunoglobulin [Concomitant]
     Indication: Neuromyelitis optica spectrum disorder

REACTIONS (2)
  - Off label use [Unknown]
  - Neuromyelitis optica spectrum disorder [Unknown]
